FAERS Safety Report 15692765 (Version 1)
Quarter: 2018Q4

REPORT INFORMATION
  Report Type: Spontaneous
  Country: US (occurrence: US)
  Receive Date: 20181206
  Receipt Date: 20181206
  Transmission Date: 20190205
  Serious: No
  Sender: FDA-Public Use
  Company Number: US-TAKEDA-2018MPI016655

PATIENT
  Sex: Male

DRUGS (4)
  1. NINLARO [Suspect]
     Active Substance: IXAZOMIB CITRATE
     Indication: PLASMA CELL MYELOMA
     Dosage: 4 MG, UNK
     Route: 048
     Dates: start: 20181123
  2. ACYCLOVIR                          /00587301/ [Concomitant]
     Active Substance: ACYCLOVIR
     Dosage: UNK
  3. OMEPRAZOLE. [Concomitant]
     Active Substance: OMEPRAZOLE
     Dosage: UNK
  4. REVLIMID [Concomitant]
     Active Substance: LENALIDOMIDE
     Dosage: UNK

REACTIONS (3)
  - Arthralgia [Unknown]
  - Fatigue [Unknown]
  - Diarrhoea [Unknown]
